FAERS Safety Report 7339059-0 (Version None)
Quarter: 2011Q1

REPORT INFORMATION
  Report Type: 
  Country: None (occurrence: None)
  Receive Date: 20110308
  Receipt Date: 20110223
  Transmission Date: 20110831
  Serious: Yes (Hospitalization)
  Sender: FDA-Public Use
  Company Number: HU-ELI_LILLY_AND_COMPANY-HU201102006830

PATIENT
  Age: 63 Year
  Sex: Female

DRUGS (3)
  1. MEDROL [Concomitant]
     Dosage: 4 MG, DAILY (1/D)
  2. ALIMTA [Suspect]
     Indication: NON-SMALL CELL LUNG CANCER
     Dosage: 800 MG, ONCE
     Route: 042
     Dates: start: 20110120
  3. QUAMATEL [Concomitant]
     Dosage: 40 MG, DAILY (1/D)
     Route: 048

REACTIONS (1)
  - SKIN ULCER [None]
